FAERS Safety Report 8234340-5 (Version None)
Quarter: 2012Q1

REPORT INFORMATION
  Report Type: 
  Country: None (occurrence: None)
  Receive Date: 20120326
  Receipt Date: 20120319
  Transmission Date: 20120608
  Serious: Yes (Hospitalization)
  Sender: FDA-Public Use
  Company Number: US-AMGEN-USASP2012017610

PATIENT
  Sex: Female

DRUGS (3)
  1. ENBREL [Suspect]
     Indication: PSORIATIC ARTHROPATHY
     Dosage: 50 MG, 2 TIMES/WK
  2. MELOXICAM [Concomitant]
     Dosage: 2 UNK, UNK
  3. CELEBREX [Concomitant]
     Dosage: UNK MG, UNK

REACTIONS (1)
  - SHOULDER OPERATION [None]
